FAERS Safety Report 8576945 (Version 2)
Quarter: 2014Q1

REPORT INFORMATION
  Report Type: Spontaneous
  Country: US (occurrence: None)
  Receive Date: 20120323
  Receipt Date: 20130305
  Transmission Date: 20141002
  Serious: Yes (Other)
  Sender: FDA-Public Use
  Company Number: 163-21880-11113818

PATIENT
  Age: 89 Year
  Sex: Male

DRUGS (1)
  1. REVLIMID [Suspect]
     Indication: MYELODYSPLASTIC SYNDROME
     Dosage: 5 MG, X 21 DAYS, OFF 7 DAYS, PO
     Route: 048
     Dates: start: 20110207, end: 20110321

REACTIONS (2)
  - White blood cell count decreased [None]
  - Pancytopenia [None]
